FAERS Safety Report 6390291-2 (Version None)
Quarter: 2009Q4

REPORT INFORMATION
  Report Type: 
  Country: None (occurrence: None)
  Receive Date: 20091005
  Receipt Date: 20091005
  Transmission Date: 20100525
  Serious: Yes (Life-Threatening, Hospitalization)
  Sender: FDA-Public Use
  Company Number: None

PATIENT
  Age: 51 Year
  Sex: Male

DRUGS (2)
  1. CLONAZEPAM [Suspect]
     Dosage: 1-2MG ONCE PO
     Route: 048
     Dates: start: 20090827, end: 20090827
  2. METHADONE HYDROCHLORIDE [Suspect]
     Dosage: 120 MG EVERY DAY PO
     Route: 048
     Dates: start: 20020923, end: 20090827

REACTIONS (4)
  - CONFUSIONAL STATE [None]
  - SEDATION [None]
  - SELF-MEDICATION [None]
  - SUICIDE ATTEMPT [None]
